FAERS Safety Report 11214613 (Version 1)
Quarter: 2015Q2

REPORT INFORMATION
  Report Type: Spontaneous
  Country: US (occurrence: None)
  Receive Date: 20150622
  Receipt Date: 20150622
  Transmission Date: 20150821
  Serious: Yes (Other)
  Sender: FDA-Public Use
  Company Number: KAD201506-001746

PATIENT
  Sex: Female

DRUGS (4)
  1. RIBAVIRIN (RIBAVIRIN) [Suspect]
     Active Substance: RIBAVIRIN
     Indication: HEPATITIS C
  2. PEGASYS [Suspect]
     Active Substance: PEGINTERFERON ALFA-2A
     Indication: HEPATITIS C
  3. SOVALDI [Suspect]
     Active Substance: SOFOSBUVIR
     Indication: HEPATITIS C
  4. INTERFERON (INTERFERON) [Suspect]
     Active Substance: INTERFERON
     Indication: HEPATITIS C

REACTIONS (2)
  - Complications of transplanted liver [None]
  - Hepatic cirrhosis [None]

NARRATIVE: CASE EVENT DATE: 2013
